FAERS Safety Report 10529861 (Version 2)
Quarter: 2015Q3

REPORT INFORMATION
  Report Type: Spontaneous
  Country: GB (occurrence: GB)
  Receive Date: 20141021
  Receipt Date: 20150828
  Transmission Date: 20151125
  Serious: Yes (Other)
  Sender: FDA-Public Use
  Company Number: GB-RANBAXY-2014RR-86875

PATIENT

DRUGS (3)
  1. AMOXICILLIN. [Suspect]
     Active Substance: AMOXICILLIN
     Indication: TOOTH INFECTION
     Dosage: 500 MG, TID, COMPLETED A 7 DAY COURSE
     Route: 065
     Dates: start: 20140903, end: 20140909
  2. BENDROFLUMETHIAZIDE [Concomitant]
     Active Substance: BENDROFLUMETHIAZIDE
     Indication: HYPERTENSION
     Dosage: 2.5 MG, QD, BEEN ON FOR 3-4 YEARS
     Route: 065
     Dates: start: 2010
  3. RAMIPRIL. [Concomitant]
     Active Substance: RAMIPRIL
     Indication: HYPERTENSION
     Dosage: 2.5 MG, QD, BEEN ON FOR 3-4 YEARS
     Route: 065
     Dates: start: 2010

REACTIONS (7)
  - Nausea [Recovered/Resolved]
  - Cough [Recovered/Resolved]
  - Dizziness [Recovered/Resolved]
  - Oral candidiasis [Recovered/Resolved]
  - Vomiting [Recovered/Resolved]
  - Dysphonia [Recovered/Resolved]
  - Throat irritation [Recovered/Resolved]
